FAERS Safety Report 5874934-5 (Version None)
Quarter: 2008Q3

REPORT INFORMATION
  Report Type: 
  Country: None (occurrence: None)
  Receive Date: 20080904
  Receipt Date: 20080820
  Transmission Date: 20090109
  Serious: Yes (Hospitalization)
  Sender: FDA-Public Use
  Company Number: JPI-P-004184

PATIENT
  Age: 82 Year
  Sex: Female

DRUGS (5)
  1. LUVOX [Suspect]
     Indication: DEPRESSION
     Dosage: 25 MG, 1 D, ORAL
     Route: 048
     Dates: start: 20080628, end: 20080702
  2. TIAPRIDE HYDROCHLORIDE [Concomitant]
  3. ALENDRONATE SODIUM [Concomitant]
  4. GLIMEPIRIDE [Concomitant]
  5. ACARBOSE [Concomitant]

REACTIONS (6)
  - ANOREXIA [None]
  - BLOOD GLUCOSE INCREASED [None]
  - GASTRIC ULCER [None]
  - HYPONATRAEMIA [None]
  - INAPPROPRIATE ANTIDIURETIC HORMONE SECRETION [None]
  - INSOMNIA [None]
